FAERS Safety Report 8037066-6 (Version None)
Quarter: 2011Q4

REPORT INFORMATION
  Report Type: 
  Country: None (occurrence: None)
  Receive Date: 20111202
  Receipt Date: 20110208
  Transmission Date: 20120403
  Serious: Yes (Hospitalization)
  Sender: FDA-Public Use
  Company Number: 2011SP005931

PATIENT
  Age: 17 Year
  Sex: Female
  Weight: 63.5036 kg

DRUGS (6)
  1. ADVAIR DISKUS 100/50 [Concomitant]
  2. IMITREX [Concomitant]
  3. NUVARING [Suspect]
     Indication: PREGNANCY
     Dates: start: 20080501, end: 20090302
  4. NUVARING [Suspect]
     Indication: MENSTRUAL DISORDER
     Dates: start: 20080501, end: 20090302
  5. ALBUTEROL [Concomitant]
  6. EXCEDRIN [Concomitant]

REACTIONS (3)
  - ANXIETY [None]
  - PULMONARY EMBOLISM [None]
  - DEPRESSION [None]
